FAERS Safety Report 16573949 (Version 1)
Quarter: 2019Q3

REPORT INFORMATION
  Report Type: Spontaneous
  Country: US (occurrence: US)
  Receive Date: 20190715
  Receipt Date: 20190715
  Transmission Date: 20191004
  Serious: No
  Sender: FDA-Public Use
  Company Number: US-MYLANLABS-2019M1060696

PATIENT
  Sex: Male

DRUGS (1)
  1. ESTRADIOL TRANSDERMAL SYSTEM [Suspect]
     Active Substance: ESTRADIOL
     Indication: PRODUCT USED FOR UNKNOWN INDICATION
     Dosage: TWO PATCHES AT A TIME ON ABDOMEN
     Route: 062

REACTIONS (3)
  - Application site rash [Unknown]
  - Application site irritation [Unknown]
  - Off label use [Unknown]
